FAERS Safety Report 25492132 (Version 1)
Quarter: 2025Q2

REPORT INFORMATION
  Report Type: Spontaneous
  Country: US (occurrence: US)
  Receive Date: 20250630
  Receipt Date: 20250630
  Transmission Date: 20250716
  Serious: Yes (Hospitalization, Other)
  Sender: HIKMA
  Company Number: US-HIKMA PHARMACEUTICALS-US-H14001-25-07907

PATIENT
  Age: 44 Year
  Sex: Male

DRUGS (7)
  1. BUPRENORPHINE\NALOXONE [Suspect]
     Active Substance: BUPRENORPHINE\NALOXONE
     Indication: Product used for unknown indication
     Route: 065
  2. DROPERIDOL [Suspect]
     Active Substance: DROPERIDOL
     Indication: Product used for unknown indication
     Route: 065
  3. FENTANYL [Suspect]
     Active Substance: FENTANYL
     Indication: Product used for unknown indication
     Route: 065
  4. HYDROMORPHONE [Suspect]
     Active Substance: HYDROMORPHONE
     Indication: Product used for unknown indication
     Route: 065
  5. MIDAZOLAM [Suspect]
     Active Substance: MIDAZOLAM
     Route: 065
  6. MIDAZOLAM [Suspect]
     Active Substance: MIDAZOLAM
     Indication: Agitation
     Route: 065
  7. NALOXONE [Suspect]
     Active Substance: NALOXONE
     Indication: Product used for unknown indication
     Route: 045

REACTIONS (11)
  - Endotracheal intubation [Recovered/Resolved]
  - Somnolence [Unknown]
  - Condition aggravated [Unknown]
  - Restlessness [Unknown]
  - Condition aggravated [Unknown]
  - Agitation [Unknown]
  - Condition aggravated [Unknown]
  - Yawning [Unknown]
  - Condition aggravated [Unknown]
  - Piloerection [Unknown]
  - Condition aggravated [Unknown]
